FAERS Safety Report 6119223-9 (Version None)
Quarter: 2009Q1

REPORT INFORMATION
  Report Type: 
  Country: None (occurrence: None)
  Receive Date: 20090316
  Receipt Date: 20090303
  Transmission Date: 20090719
  Serious: Yes (Hospitalization)
  Sender: FDA-Public Use
  Company Number: US-ROCHE-619166

PATIENT
  Age: 20 Year
  Sex: Male

DRUGS (1)
  1. FUZEON [Suspect]
     Indication: DRUG USE FOR UNKNOWN INDICATION
     Dosage: PATIENT TOOK FUZEON 1-2 YEARS AGO.
     Route: 065
     Dates: start: 20070101

REACTIONS (3)
  - INFECTION [None]
  - OESOPHAGITIS [None]
  - VIRAL LOAD INCREASED [None]
